FAERS Safety Report 15501306 (Version 1)
Quarter: 2018Q4

REPORT INFORMATION
  Report Type: Spontaneous
  Country: AU (occurrence: AU)
  Receive Date: 20181015
  Receipt Date: 20181015
  Transmission Date: 20190205
  Serious: Yes (Hospitalization)
  Sender: FDA-Public Use
  Company Number: AU-GILEAD-2018-0366669

PATIENT
  Age: 37 Year
  Sex: Male

DRUGS (3)
  1. GENVOYA [Suspect]
     Active Substance: COBICISTAT\ELVITEGRAVIR\EMTRICITABINE\TENOFOVIR ALAFENAMIDE FUMARATE
     Indication: PRODUCT USED FOR UNKNOWN INDICATION
     Dosage: UNK
     Route: 065
  2. THIAMINE. [Suspect]
     Active Substance: THIAMINE
     Dosage: 900 MG, UNK
     Route: 065
  3. THIAMINE. [Suspect]
     Active Substance: THIAMINE
     Indication: PRODUCT USED FOR UNKNOWN INDICATION
     Dosage: 300 MG, UNK
     Route: 065

REACTIONS (4)
  - Abdominal discomfort [Unknown]
  - Overdose [Recovered/Resolved]
  - Colitis [Unknown]
  - Malaise [Unknown]

NARRATIVE: CASE EVENT DATE: 20181001
